FAERS Safety Report 16254975 (Version 1)
Quarter: 2019Q2

REPORT INFORMATION
  Report Type: Spontaneous
  Country: US (occurrence: US)
  Receive Date: 20190429
  Receipt Date: 20190429
  Transmission Date: 20190711
  Serious: Yes (Other)
  Sender: FDA-Public Use
  Company Number: None

PATIENT
  Age: 71 Year
  Sex: Female
  Weight: 83.25 kg

DRUGS (14)
  1. B-1 [Concomitant]
  2. ASPIRIN. [Concomitant]
     Active Substance: ASPIRIN
  3. CALCIUM [Concomitant]
     Active Substance: CALCIUM
  4. DAILY MULTIPLE VITAMIN/MINERALS [Concomitant]
  5. AMOX-CLAV [Suspect]
     Active Substance: AMOXICILLIN\CLAVULANATE POTASSIUM
     Indication: SINUSITIS
     Dosage: ?          QUANTITY:20 TABLET(S);?
     Route: 048
     Dates: start: 20190308, end: 20190312
  6. COMPOUNDED MED FOR MITO MYOPATHY (FOLIC ACID, CREATINE, CO ENZYMEQ10 AND CARNITINE) [Concomitant]
  7. POTASSIUM [Concomitant]
     Active Substance: POTASSIUM
  8. OMEPRAZOLE. [Concomitant]
     Active Substance: OMEPRAZOLE
  9. VERAPAMIL [Concomitant]
     Active Substance: VERAPAMIL HYDROCHLORIDE
  10. EMERGENCY ASTHMA INHALER [Concomitant]
  11. VITAMIN B12 [Concomitant]
     Active Substance: CYANOCOBALAMIN
  12. D-3 [Concomitant]
     Active Substance: CHOLECALCIFEROL
  13. MAGNESIUM [Concomitant]
     Active Substance: MAGNESIUM
  14. TRIPLE STRENGTH RASPBERRY KETONES [Concomitant]

REACTIONS (2)
  - Drug ineffective [None]
  - Deafness [None]

NARRATIVE: CASE EVENT DATE: 20190312
